FAERS Safety Report 6525300-0 (Version None)
Quarter: 2009Q4

REPORT INFORMATION
  Report Type: 
  Country: None (occurrence: None)
  Receive Date: 20091228
  Receipt Date: 20091203
  Transmission Date: 20100525
  Serious: Yes (Other)
  Sender: FDA-Public Use
  Company Number: JPI-P-009352

PATIENT
  Age: 15 Year
  Sex: Male

DRUGS (5)
  1. FLUVOXAMINE MALEATE [Suspect]
     Indication: DRUG USE FOR UNKNOWN INDICATION
     Dosage: (UNKNOWN), ORAL
     Route: 048
  2. SERTRALINE HYDROCHLORIDE [Suspect]
     Indication: DRUG USE FOR UNKNOWN INDICATION
  3. FLUOXETINE HYDROCHLORIDE [Suspect]
     Indication: DRUG USE FOR UNKNOWN INDICATION
  4. SERTRALINE HCL [Suspect]
     Indication: DRUG USE FOR UNKNOWN INDICATION
  5. CLONAZEPAM [Concomitant]

REACTIONS (9)
  - AGITATION [None]
  - ANGER [None]
  - BELLIGERENCE [None]
  - DEPRESSED MOOD [None]
  - DRUG INEFFECTIVE [None]
  - FEELING ABNORMAL [None]
  - MENTAL DISORDER [None]
  - SELF INJURIOUS BEHAVIOUR [None]
  - SUICIDAL IDEATION [None]
